FAERS Safety Report 10650328 (Version 2)
Quarter: 2014Q4

REPORT INFORMATION
  Report Type: Spontaneous
  Country: JP (occurrence: JP)
  Receive Date: 20141213
  Receipt Date: 20141213
  Transmission Date: 20150529
  Serious: Yes (Death, Hospitalization, Other)
  Sender: FDA-Public Use
  Company Number: JP-ABBVIE-14K-087-1271973-00

PATIENT
  Age: 47 Year
  Sex: Male
  Weight: 63 kg

DRUGS (5)
  1. HUMIRA [Suspect]
     Active Substance: ADALIMUMAB
     Route: 058
     Dates: start: 20121219, end: 20140626
  2. MECOBALAMIN [Concomitant]
     Active Substance: METHYLCOBALAMIN
     Indication: ANAEMIA MACROCYTIC
     Dosage: ON MONDAYS, WEDNESDAYS AND FRIDAYS
     Route: 030
     Dates: start: 20121119
  3. HUMIRA [Suspect]
     Active Substance: ADALIMUMAB
     Indication: CROHN^S DISEASE
     Route: 058
     Dates: start: 20121121, end: 20121121
  4. URSODEOXYCHOLIC ACID [Concomitant]
     Active Substance: URSODIOL
     Indication: CHOLELITHIASIS
     Dates: start: 20140123, end: 20140709
  5. HUMIRA [Suspect]
     Active Substance: ADALIMUMAB
     Route: 058
     Dates: start: 20121205, end: 20121205

REACTIONS (18)
  - Metastases to liver [Unknown]
  - Ascites [Unknown]
  - Renal impairment [Unknown]
  - Candida test positive [Unknown]
  - Pyrexia [Unknown]
  - Gallbladder abscess [Unknown]
  - Small intestinal perforation [Unknown]
  - Abdominal wall abscess [Fatal]
  - Crohn^s disease [Fatal]
  - Gallbladder disorder [Unknown]
  - Gallbladder cancer metastatic [Fatal]
  - Mesenteric neoplasm [Unknown]
  - Ileus [Fatal]
  - General physical health deterioration [Unknown]
  - Post procedural complication [Unknown]
  - Fungal infection [Unknown]
  - Sepsis [Unknown]
  - Emphysema [Unknown]

NARRATIVE: CASE EVENT DATE: 2012
